FAERS Safety Report 7568744-0 (Version None)
Quarter: 2011Q2

REPORT INFORMATION
  Report Type: 
  Country: None (occurrence: None)
  Receive Date: 20110623
  Receipt Date: 20110609
  Transmission Date: 20111010
  Serious: Yes (Hospitalization)
  Sender: FDA-Public Use
  Company Number: PT-JNJFOC-20110606246

PATIENT
  Age: 36 Year
  Sex: Female

DRUGS (12)
  1. INFLIXIMAB, RECOMBINANT [Suspect]
     Route: 042
  2. INFLIXIMAB, RECOMBINANT [Suspect]
     Route: 042
  3. INFLIXIMAB, RECOMBINANT [Suspect]
     Indication: SARCOIDOSIS
     Route: 042
  4. INFLIXIMAB, RECOMBINANT [Suspect]
     Route: 042
  5. INFLIXIMAB, RECOMBINANT [Suspect]
     Route: 042
  6. PREDNISOLONE [Concomitant]
  7. PREDNISOLONE [Concomitant]
  8. INFLIXIMAB, RECOMBINANT [Suspect]
     Route: 042
  9. CARBAMAZEPINE [Concomitant]
     Indication: EPILEPSY
  10. PREDNISOLONE [Concomitant]
     Indication: SARCOIDOSIS
  11. METHOTREXATE [Concomitant]
     Indication: SARCOIDOSIS
  12. METHOTREXATE [Concomitant]

REACTIONS (2)
  - HERPES ZOSTER [None]
  - TOXIC SKIN ERUPTION [None]
